FAERS Safety Report 9400209 (Version 2)
Quarter: 2013Q2

REPORT INFORMATION
  Report Type: Spontaneous
  Country: US (occurrence: None)
  Receive Date: 20130424
  Receipt Date: 20130503
  Transmission Date: 20140414
  Serious: Yes (Hospitalization)
  Sender: FDA-Public Use
  Company Number: 2013US001478

PATIENT
  Age: 56 Year
  Sex: Male

DRUGS (1)
  1. ICLUSIG [Suspect]
     Indication: ACUTE LYMPHOCYTIC LEUKAEMIA
     Route: 048
     Dates: start: 20130118, end: 20130409

REACTIONS (4)
  - Liver disorder [None]
  - Gastrointestinal disorder [None]
  - Pyrexia [None]
  - Fatigue [None]
